FAERS Safety Report 4964419-2 (Version None)
Quarter: 2006Q2

REPORT INFORMATION
  Report Type: 
  Country: None (occurrence: None)
  Receive Date: 20060406
  Receipt Date: 20060330
  Transmission Date: 20061013
  Serious: Yes (Hospitalization)
  Sender: FDA-Public Use
  Company Number: 2006CG00611

PATIENT
  Age: 67 Year
  Sex: Male
  Weight: 99 kg

DRUGS (6)
  1. CRESTOR [Suspect]
     Route: 048
  2. PREVISCAN [Interacting]
     Route: 048
  3. KENZEN [Concomitant]
     Route: 048
  4. PROPOFOL [Concomitant]
     Route: 048
  5. TARDYFERON [Concomitant]
     Route: 048
  6. LEXOMIL [Concomitant]
     Route: 048

REACTIONS (10)
  - ANAEMIA [None]
  - BLOOD FIBRINOGEN INCREASED [None]
  - DRUG INTERACTION [None]
  - FALL [None]
  - HAEMATOMA [None]
  - INFLAMMATION [None]
  - INTERNATIONAL NORMALISED RATIO INCREASED [None]
  - MUSCLE HAEMORRHAGE [None]
  - OVERDOSE [None]
  - PROTHROMBIN LEVEL DECREASED [None]
